FAERS Safety Report 10553766 (Version 1)
Quarter: 2014Q4

REPORT INFORMATION
  Report Type: Spontaneous
  Country: US (occurrence: None)
  Receive Date: 20141029
  Receipt Date: 20141029
  Transmission Date: 20150529
  Serious: Yes (Other)
  Sender: FDA-Public Use
  Company Number: None

PATIENT
  Age: 59 Year
  Sex: Female

DRUGS (2)
  1. FORTEO [Suspect]
     Active Substance: TERIPARATIDE
     Indication: CHONDROPATHY
     Dosage: 20.00 MCG, DAILY, SQ
     Dates: start: 20140929
  2. FORTEO [Suspect]
     Active Substance: TERIPARATIDE
     Indication: BONE DISORDER
     Dosage: 20.00 MCG, DAILY, SQ
     Dates: start: 20140929

REACTIONS (1)
  - Fatigue [None]

NARRATIVE: CASE EVENT DATE: 20141022
